FAERS Safety Report 9271643 (Version 1)
Quarter: 2013Q2

REPORT INFORMATION
  Report Type: Spontaneous
  Country: CN (occurrence: CN)
  Receive Date: 20130506
  Receipt Date: 20130506
  Transmission Date: 20140414
  Serious: Yes (Other)
  Sender: FDA-Public Use
  Company Number: CN-ASTELLAS-2013JP005610

PATIENT
  Age: 5 Year
  Sex: Female

DRUGS (4)
  1. TACROLIMUS [Suspect]
     Indication: PROPHYLAXIS AGAINST TRANSPLANT REJECTION
     Dosage: 0.1 MG/KG, UNKNOWN/D
     Route: 065
  2. TACROLIMUS [Suspect]
     Dosage: 0.3 MG/KG, UNKNOWN/D
     Route: 065
  3. TACROLIMUS [Suspect]
     Dosage: 0.05 MG/KG, UNKNOWN/D
     Route: 065
  4. METACORTANSRALONE [Concomitant]
     Indication: PROPHYLAXIS AGAINST TRANSPLANT REJECTION
     Dosage: UNK
     Route: 065

REACTIONS (5)
  - Drug ineffective [Unknown]
  - Transplant rejection [Unknown]
  - Aphasia [Recovering/Resolving]
  - Tremor [Not Recovered/Not Resolved]
  - Ataxia [Not Recovered/Not Resolved]
